FAERS Safety Report 6127019-7 (Version None)
Quarter: 2009Q1

REPORT INFORMATION
  Report Type: 
  Country: None (occurrence: None)
  Receive Date: 20090320
  Receipt Date: 20090311
  Transmission Date: 20090719
  Serious: Yes (Other)
  Sender: FDA-Public Use
  Company Number: PHHY2009IE05031

PATIENT
  Sex: Male

DRUGS (8)
  1. CLOZARIL [Suspect]
     Indication: SCHIZOPHRENIA, PARANOID TYPE
     Dosage: UNK
     Route: 048
     Dates: start: 20050125
  2. CLOZARIL [Suspect]
     Indication: OBSESSIVE-COMPULSIVE DISORDER
     Dosage: 500 MG NOCTE
  3. CLOZARIL [Suspect]
     Dosage: UNK
  4. CLOZARIL [Suspect]
     Dosage: 700 MG
  5. FLUOXETINE [Concomitant]
     Dosage: 80 MG, QD
  6. SOLIAN [Concomitant]
     Dosage: 800 MG, BID
  7. ARIPIPRAZOLE [Concomitant]
     Dosage: 30 MG MANE, 50 MG NOCTE
  8. ANAFRANIL [Concomitant]
     Dosage: 50 MG, QD

REACTIONS (3)
  - CONVULSION [None]
  - DRUG ADMINISTRATION ERROR [None]
  - INTENTIONAL OVERDOSE [None]
